FAERS Safety Report 15984175 (Version 2)
Quarter: 2019Q1

REPORT INFORMATION
  Report Type: Spontaneous
  Country: KR (occurrence: KR)
  Receive Date: 20190219
  Receipt Date: 20190314
  Transmission Date: 20190418
  Serious: Yes (Death, Hospitalization, Other)
  Sender: FDA-Public Use
  Company Number: KR-009507513-1902KOR005605

PATIENT
  Sex: Female

DRUGS (44)
  1. ABSTRAL [Concomitant]
     Active Substance: FENTANYL CITRATE
     Dosage: UNK
     Dates: start: 20190121
  2. LACIDOFIL [Concomitant]
     Active Substance: LACTOBACILLUS ACIDOPHILUS\LACTOBACILLUS RHAMNOSUS
     Dosage: UNK
     Dates: start: 20181229, end: 20181231
  3. MOTILIUM M [Concomitant]
     Dosage: UNK
     Dates: start: 20181229, end: 20181231
  4. MOTILIUM M [Concomitant]
     Dosage: UNK
     Dates: start: 20190121
  5. SODIUM CHLORIDE. [Concomitant]
     Active Substance: SODIUM CHLORIDE
     Dosage: UNK
     Dates: start: 20181228, end: 20181230
  6. NASERON [Concomitant]
     Dosage: UNK
     Dates: start: 20190120
  7. KEYTRUDA [Suspect]
     Active Substance: PEMBROLIZUMAB
     Indication: SQUAMOUS CELL CARCINOMA OF THE CERVIX
     Dosage: UNK
     Dates: start: 20190120
  8. ANAPROX [Concomitant]
     Active Substance: NAPROXEN SODIUM
     Dosage: UNK
     Dates: start: 20190119
  9. LACIDOFIL [Concomitant]
     Active Substance: LACTOBACILLUS ACIDOPHILUS\LACTOBACILLUS RHAMNOSUS
     Dosage: UNK
     Dates: start: 20181228
  10. TARGIN [Concomitant]
     Active Substance: NALOXONE HYDROCHLORIDE\OXYCODONE HYDROCHLORIDE
     Dosage: UNK
     Dates: start: 20181228, end: 20181231
  11. TARGIN [Concomitant]
     Active Substance: NALOXONE HYDROCHLORIDE\OXYCODONE HYDROCHLORIDE
     Dosage: UNK
     Dates: start: 20190119, end: 20190121
  12. ZEMIGLO [Concomitant]
     Dosage: UNK
     Dates: start: 20181228, end: 20181231
  13. PENIRAMIN [Concomitant]
     Dosage: UNK
     Dates: start: 20181228
  14. KEYTRUDA [Suspect]
     Active Substance: PEMBROLIZUMAB
     Indication: RECTAL CANCER
  15. ARONAMIN C PLUS [Concomitant]
     Dosage: UNK
     Dates: start: 20181228, end: 20181231
  16. ARONAMIN C PLUS [Concomitant]
     Dosage: UNK
     Dates: start: 20190119, end: 20190121
  17. MOTILIUM M [Concomitant]
     Dosage: UNK
     Dates: start: 20181228
  18. MOTILIUM M [Concomitant]
     Dosage: UNK
     Dates: start: 20190119
  19. PHAZYME (PANCREATIN (+) SIMETHICONE) [Concomitant]
     Dosage: UNK
     Dates: start: 20190120
  20. ALBUMIN HUMAN [Concomitant]
     Active Substance: ALBUMIN HUMAN
     Dosage: UNK
     Dates: start: 20190119
  21. SODIUM CHLORIDE. [Concomitant]
     Active Substance: SODIUM CHLORIDE
     Dosage: UNK
     Dates: start: 20190119, end: 20190120
  22. PENIRAMIN [Concomitant]
     Dosage: UNK
     Dates: start: 20190119
  23. LACIDOFIL [Concomitant]
     Active Substance: LACTOBACILLUS ACIDOPHILUS\LACTOBACILLUS RHAMNOSUS
     Dosage: UNK
     Dates: start: 20190120, end: 20190121
  24. MOTILIUM M [Concomitant]
     Dosage: UNK
     Dates: start: 20181228
  25. MOTILIUM M [Concomitant]
     Dosage: UNK
     Dates: start: 20190120, end: 20190121
  26. ZEMIGLO [Concomitant]
     Dosage: UNK
     Dates: start: 20190119, end: 20190121
  27. ABSTRAL [Concomitant]
     Active Substance: FENTANYL CITRATE
     Dosage: UNK
     Dates: start: 20181231
  28. ANAPROX [Concomitant]
     Active Substance: NAPROXEN SODIUM
     Dosage: UNK
     Dates: start: 20181231
  29. SYNTHYROXINE [Concomitant]
     Active Substance: LEVOTHYROXINE SODIUM
     Dosage: UNK
     Dates: start: 20181228, end: 20181231
  30. SYNTHYROXINE [Concomitant]
     Active Substance: LEVOTHYROXINE SODIUM
     Dosage: UNK
     Dates: start: 20190119, end: 20190121
  31. YUHAN DEXAMETHASONE (DEXAMETHASONE SODIUM PHOSPHATE) [Concomitant]
     Dosage: UNK
     Dates: start: 20181228
  32. HUMALOG [Concomitant]
     Active Substance: INSULIN LISPRO
     Dosage: UNK
     Dates: start: 20181229
  33. KEYTRUDA [Suspect]
     Active Substance: PEMBROLIZUMAB
     Indication: FISTULA
     Dosage: UNK
     Dates: start: 20181229
  34. ABSTRAL [Concomitant]
     Active Substance: FENTANYL CITRATE
     Dosage: UNK
     Dates: start: 20190119
  35. ANAPROX [Concomitant]
     Active Substance: NAPROXEN SODIUM
     Dosage: UNK
     Dates: start: 20190119, end: 20190120
  36. SODIUM CHLORIDE. [Concomitant]
     Active Substance: SODIUM CHLORIDE
     Dosage: UNK
     Dates: start: 20190120
  37. YUHAN DEXAMETHASONE (DEXAMETHASONE SODIUM PHOSPHATE) [Concomitant]
     Dosage: UNK
     Dates: start: 20190119
  38. TRIDOL (BUPRENORPHINE) [Concomitant]
     Dosage: UNK
     Dates: start: 20181230
  39. ANAPROX [Concomitant]
     Active Substance: NAPROXEN SODIUM
     Dosage: UNK
     Dates: start: 20190121
  40. LACIDOFIL [Concomitant]
     Active Substance: LACTOBACILLUS ACIDOPHILUS\LACTOBACILLUS RHAMNOSUS
     Dosage: UNK
     Dates: start: 20190119
  41. TARGIN [Concomitant]
     Active Substance: NALOXONE HYDROCHLORIDE\OXYCODONE HYDROCHLORIDE
     Dosage: UNK
     Dates: start: 20190120
  42. ALBUMIN HUMAN [Concomitant]
     Active Substance: ALBUMIN HUMAN
     Dosage: UNK
     Dates: start: 20181228
  43. SODIUM CHLORIDE. [Concomitant]
     Active Substance: SODIUM CHLORIDE
     Dosage: UNK
     Dates: start: 20181229
  44. DONG A GASTER [Concomitant]
     Dosage: VIAL
     Dates: start: 20190120

REACTIONS (4)
  - Metastatic uterine cancer [Fatal]
  - Adverse event [Unknown]
  - Product use in unapproved indication [Unknown]
  - Adverse event [Unknown]

NARRATIVE: CASE EVENT DATE: 201812
